FAERS Safety Report 8383245-8 (Version None)
Quarter: 2012Q2

REPORT INFORMATION
  Report Type: 
  Country: None (occurrence: None)
  Receive Date: 20120524
  Receipt Date: 20120516
  Transmission Date: 20120825
  Serious: No
  Sender: FDA-Public Use
  Company Number: US-ASTRAZENECA-2011SE41450

PATIENT
  Age: 59 Year
  Sex: Female

DRUGS (30)
  1. MESTRON [Concomitant]
     Indication: MUSCLE DISORDER
  2. PREMARIN [Concomitant]
     Indication: HORMONE LEVEL ABNORMAL
  3. SINGULAIR [Concomitant]
     Indication: SINUS DISORDER
  4. SUCRALFATE [Concomitant]
     Indication: GASTRITIS PROPHYLAXIS
     Dosage: 1 GM, 1 TABLET, 1/2 HOURBEFORE EACH MEAL
  5. NEXIUM [Suspect]
     Route: 048
     Dates: start: 20090622
  6. DIAZEPAM [Concomitant]
     Indication: SLEEP DISORDER
  7. PRISTIQ [Concomitant]
     Indication: DEPRESSION
  8. MESTINON [Concomitant]
     Dates: start: 20090622
  9. PEPCID [Concomitant]
     Dates: start: 19920101, end: 19940101
  10. NEXIUM [Suspect]
     Indication: GASTROOESOPHAGEAL REFLUX DISEASE
     Dosage: 20 OR 40 MG ONCE A DAY
     Route: 048
     Dates: start: 20010101, end: 20110101
  11. NEXIUM [Suspect]
     Route: 048
     Dates: start: 20090622
  12. LIPITOR [Concomitant]
     Indication: BLOOD CHOLESTEROL
  13. ASPIRIN [Concomitant]
     Indication: CARDIAC DISORDER
  14. PANTOPRAZOLE [Concomitant]
     Indication: ABDOMINAL DISCOMFORT
  15. PRILOSEC [Concomitant]
  16. ZANTAC [Concomitant]
     Dosage: ONCE A DAY
     Dates: start: 19920101, end: 19940101
  17. CARVEDILOL [Concomitant]
     Indication: BLOOD PRESSURE
  18. GABAPENTIN [Concomitant]
     Indication: PAIN
     Dosage: 300 MG, 3 TABLETS AT BEDTIME
  19. HYDROCODONE [Concomitant]
     Indication: BONE PAIN
     Dosage: 5 TO 3.25 MG, 6 TO 8 HOURS AS NEEDED
  20. NEXIUM [Suspect]
     Route: 048
     Dates: start: 20090622
  21. GABAPENTIN [Concomitant]
     Indication: DEPRESSION
     Dosage: 300 MG, 3 TABLETS AT BEDTIME
  22. GABAPENTIN [Concomitant]
     Dosage: 300 MG, 3 TABLETS AT BEDTIME
  23. NEXIUM [Suspect]
     Indication: ULCER
     Dosage: 20 OR 40 MG ONCE A DAY
     Route: 048
     Dates: start: 20010101, end: 20110101
  24. CELLCEPT [Concomitant]
     Indication: MUSCLE DISORDER
     Dosage: 500 MG, 2 TABLETS, TWICE A DAY
  25. PREMARIN [Concomitant]
     Dates: start: 20090622
  26. NEXIUM [Suspect]
     Indication: ABDOMINAL DISCOMFORT
     Dosage: 20 OR 40 MG ONCE A DAY
     Route: 048
     Dates: start: 20010101, end: 20110101
  27. FOSAMAX [Concomitant]
     Indication: OSTEOPOROSIS
  28. LORATADINE [Concomitant]
     Indication: SINUS DISORDER
  29. DIAZEPAM [Concomitant]
     Indication: DEPRESSION
  30. PRISTIQ [Concomitant]
     Indication: POOR QUALITY SLEEP

REACTIONS (12)
  - ANKLE FRACTURE [None]
  - CALCIUM DEFICIENCY [None]
  - DYSPEPSIA [None]
  - CHILLS [None]
  - VITAMIN D DEFICIENCY [None]
  - ARTHRITIS [None]
  - PYREXIA [None]
  - OSTEOPOROSIS [None]
  - DYSPHAGIA [None]
  - GASTRIC DISORDER [None]
  - POOR QUALITY SLEEP [None]
  - DEPRESSION [None]
